FAERS Safety Report 14481647 (Version 1)
Quarter: 2018Q1

REPORT INFORMATION
  Report Type: Spontaneous
  Country: IL (occurrence: IL)
  Receive Date: 20180202
  Receipt Date: 20180202
  Transmission Date: 20180509
  Serious: Yes (Hospitalization, Other)
  Sender: FDA-Public Use
  Company Number: IL-TEVA-2018-IL-851823

PATIENT
  Age: 73 Year
  Sex: Female

DRUGS (1)
  1. CAPECITABINE TEVA [Suspect]
     Active Substance: CAPECITABINE
     Indication: PROPHYLAXIS
     Dosage: 3000 MILLIGRAM DAILY; 1500MG MORNING+ 1500MG EVENING
     Route: 065
     Dates: start: 201712, end: 201712

REACTIONS (9)
  - Respiratory failure [Recovering/Resolving]
  - Toxicity to various agents [Unknown]
  - Thrombocytopenia [Unknown]
  - Diarrhoea [Not Recovered/Not Resolved]
  - Infection [Unknown]
  - Leukopenia [Unknown]
  - Renal failure [Unknown]
  - Bone marrow failure [Recovering/Resolving]
  - Electrolyte imbalance [Unknown]

NARRATIVE: CASE EVENT DATE: 201712
